FAERS Safety Report 16841485 (Version 2)
Quarter: 2019Q4

REPORT INFORMATION
  Report Type: Spontaneous
  Country: US (occurrence: US)
  Receive Date: 20190923
  Receipt Date: 20191001
  Transmission Date: 20200122
  Serious: Yes (Hospitalization, Other)
  Sender: FDA-Public Use
  Company Number: US-SHIRE-US201930608

PATIENT
  Sex: Female

DRUGS (1)
  1. GATTEX [Suspect]
     Active Substance: TEDUGLUTIDE\WATER
     Indication: PRODUCT USED FOR UNKNOWN INDICATION
     Dosage: 0.1370 UNIT UNKNOWN; OTHER
     Route: 058
     Dates: start: 20141117

REACTIONS (3)
  - Unevaluable event [Not Recovered/Not Resolved]
  - Sepsis [Unknown]
  - Vascular device infection [Unknown]
